FAERS Safety Report 5450110-5 (Version None)
Quarter: 2007Q3

REPORT INFORMATION
  Report Type: 
  Country: None (occurrence: None)
  Receive Date: 20070912
  Receipt Date: 20070910
  Transmission Date: 20080115
  Serious: Yes (Congenital Anomaly)
  Sender: FDA-Public Use
  Company Number: US-BRISTOL-MYERS SQUIBB COMPANY-13884366

PATIENT
  Sex: Male
  Weight: 4 kg

DRUGS (7)
  1. DIDANOSINE [Suspect]
     Indication: HIV INFECTION
     Route: 064
  2. SUSTIVA [Suspect]
     Indication: HIV INFECTION
     Route: 064
  3. LAMIVUDINE [Suspect]
     Indication: HIV INFECTION
     Route: 064
  4. AZT [Suspect]
     Indication: HIV INFECTION
     Route: 064
  5. NELFINAVIR [Suspect]
     Indication: HIV INFECTION
     Route: 064
  6. INDINAVIR [Suspect]
     Indication: HIV INFECTION
     Route: 064
  7. RITONAVIR [Suspect]
     Indication: HIV INFECTION
     Route: 064

REACTIONS (3)
  - DRUG EXPOSURE DURING PREGNANCY [None]
  - HYPOSPADIAS [None]
  - PREGNANCY [None]
